FAERS Safety Report 9233549 (Version 2)
Quarter: 2013Q2

REPORT INFORMATION
  Report Type: Spontaneous
  Country: US (occurrence: US)
  Receive Date: 20130416
  Receipt Date: 20130507
  Transmission Date: 20140414
  Serious: No
  Sender: FDA-Public Use
  Company Number: US-009507513-1304USA002391

PATIENT
  Age: 62 Year
  Sex: Male
  Weight: 90.7 kg

DRUGS (6)
  1. VICTRELIS [Suspect]
     Dosage: 800 MG, TID
     Route: 048
     Dates: start: 2013
  2. REBETOL [Suspect]
     Route: 048
  3. PEGASYS [Suspect]
  4. SERTRALINE HYDROCHLORIDE [Concomitant]
     Route: 048
  5. AMLODIPINE [Concomitant]
     Route: 048
  6. LOSARTAN POTASSIUM [Concomitant]
     Route: 048

REACTIONS (5)
  - Haematochezia [Unknown]
  - Nausea [Unknown]
  - Fatigue [Unknown]
  - Haematochezia [Unknown]
  - Viral load increased [Unknown]
